FAERS Safety Report 8813750 (Version 3)
Quarter: 2013Q1

REPORT INFORMATION
  Report Type: Report from Study
  Country: JP (occurrence: JP)
  Receive Date: 20120928
  Receipt Date: 20130213
  Transmission Date: 20140127
  Serious: Yes (Hospitalization)
  Sender: FDA-Public Use
  Company Number: JP-009507513-2012SP036762

PATIENT
  Age: 45 Year
  Sex: Male
  Weight: 68 kg

DRUGS (15)
  1. PEGINTRON [Suspect]
     Indication: CHRONIC HEPATITIS C
     Dosage: 1.5 MICROGRAM PER KILOGRAM, QW
     Route: 058
     Dates: start: 20120308, end: 20120515
  2. REBETOL [Suspect]
     Indication: CHRONIC HEPATITIS C
     Dosage: 800 MG, QD
     Route: 048
     Dates: start: 20120308, end: 20120424
  3. REBETOL [Suspect]
     Dosage: 600 MG, QD
     Route: 048
     Dates: start: 20120425, end: 20120515
  4. REBETOL [Suspect]
     Dosage: 400 MG, QD
     Route: 048
     Dates: start: 20120516, end: 20120522
  5. TELAVIC [Suspect]
     Indication: CHRONIC HEPATITIS C
     Dosage: 2250 MG, QD
     Route: 048
     Dates: start: 20120308, end: 20120518
  6. URSODIOL [Concomitant]
     Indication: CHRONIC HEPATITIS C
     Dosage: 600 MG, QD
     Route: 048
  7. URSODIOL [Concomitant]
     Dosage: 600 MG, QD
     Route: 048
     Dates: start: 20120619
  8. VOLTAREN [Concomitant]
     Indication: PROPHYLAXIS
     Dosage: 25 MG/DAY, PRN
     Route: 054
     Dates: start: 20120308
  9. OMEPRAZOLE [Concomitant]
     Indication: PROPHYLAXIS
     Dosage: 20 MG, 1T/1X EVENING
     Route: 048
     Dates: start: 20120309
  10. RIZE [Concomitant]
     Indication: PROPHYLAXIS
     Dosage: 5 MG ,2T/2 X MORNING,EVENING
     Route: 048
     Dates: start: 20120309
  11. RIZE [Concomitant]
     Dosage: 5 MG/ DAY AS NEEDED
     Route: 048
     Dates: start: 20120619
  12. ALLOZYM [Concomitant]
     Indication: PROPHYLAXIS
     Dosage: 100 MG, QD FORMULATION: POR
     Route: 048
  13. NAUZELIN [Concomitant]
     Indication: PROPHYLAXIS
     Dosage: 10 MG/DAY AS NEEDED, FORMULATION:POR
     Route: 048
  14. KOBALNON [Concomitant]
     Indication: PROPHYLAXIS
     Dosage: 150 MG, QD
     Route: 048
     Dates: end: 20120624
  15. CALONAL [Concomitant]
     Indication: PROPHYLAXIS
     Dosage: 200 MG/DAY AS NEEDED
     Route: 048
     Dates: start: 20120309

REACTIONS (2)
  - Drug eruption [Recovered/Resolved]
  - Nausea [Unknown]
